FAERS Safety Report 8448938-2 (Version None)
Quarter: 2012Q2

REPORT INFORMATION
  Report Type: 
  Country: None (occurrence: None)
  Receive Date: 20120619
  Receipt Date: 20120614
  Transmission Date: 20120825
  Serious: Yes (Hospitalization)
  Sender: FDA-Public Use
  Company Number: SE-GLAXOSMITHKLINE-B0808595A

PATIENT
  Sex: Male

DRUGS (2)
  1. AZILECT [Concomitant]
  2. REQUIP CR [Suspect]
     Indication: PARKINSON'S DISEASE
     Route: 065
     Dates: end: 20120201

REACTIONS (2)
  - AGGRESSION [None]
  - HALLUCINATION [None]
